FAERS Safety Report 24111130 (Version 1)
Quarter: 2024Q3

REPORT INFORMATION
  Report Type: Report from Study
  Country: CO (occurrence: CO)
  Receive Date: 20240718
  Receipt Date: 20240718
  Transmission Date: 20241017
  Serious: Yes (Hospitalization)
  Sender: ABBVIE
  Company Number: CO-ABBVIE-5842443

PATIENT
  Age: 36 Year
  Sex: Female
  Weight: 83 kg

DRUGS (6)
  1. SKYRIZI [Suspect]
     Active Substance: RISANKIZUMAB-RZAA
     Indication: Psoriasis
     Dosage: FORM STRENGTH 150 MILLIGRAM
     Route: 058
     Dates: start: 20210615, end: 20240416
  2. TAMSULOSIN [Suspect]
     Active Substance: TAMSULOSIN
     Indication: Product used for unknown indication
     Route: 065
  3. DICLOFENAC [Concomitant]
     Active Substance: DICLOFENAC
     Indication: Pain
     Route: 042
     Dates: start: 202303, end: 202303
  4. ACETAMINOPHEN [Concomitant]
     Active Substance: ACETAMINOPHEN
     Indication: General symptom
     Dosage: FORM STRENGTH 500 MILLIGRAM
     Route: 048
     Dates: start: 202407, end: 202407
  5. CETIRIZINE [Concomitant]
     Active Substance: CETIRIZINE HYDROCHLORIDE
     Indication: General symptom
     Route: 048
     Dates: start: 202407, end: 202407
  6. TAPSIN [Concomitant]
     Indication: General symptom
     Dosage: 2 UNKNOWN
     Route: 048
     Dates: start: 20240709, end: 20240714

REACTIONS (11)
  - Tachycardia [Unknown]
  - Pain [Recovered/Resolved]
  - Dyspnoea [Unknown]
  - COVID-19 [Recovering/Resolving]
  - Unevaluable event [Recovered/Resolved]
  - Decreased appetite [Recovering/Resolving]
  - Throat irritation [Not Recovered/Not Resolved]
  - Nephrolithiasis [Recovered/Resolved]
  - Pain [Recovering/Resolving]
  - Sneezing [Recovering/Resolving]
  - Urinary tract infection [Recovered/Resolved]

NARRATIVE: CASE EVENT DATE: 20230301
